FAERS Safety Report 22117566 (Version 2)
Quarter: 2023Q2

REPORT INFORMATION
  Report Type: Report from Study
  Country: US (occurrence: US)
  Receive Date: 20230321
  Receipt Date: 20230509
  Transmission Date: 20230722
  Serious: No
  Sender: FDA-Public Use
  Company Number: US-ACADIA PHARMACEUTICALS INC.-ACA-2023-PIM-000794

PATIENT
  Age: 68 Year
  Sex: Male

DRUGS (14)
  1. NUPLAZID [Suspect]
     Active Substance: PIMAVANSERIN TARTRATE
     Indication: Parkinson^s disease
     Dosage: 34 MILLIGRAM, QD
     Route: 048
     Dates: start: 20230202, end: 20230203
  2. NUPLAZID [Suspect]
     Active Substance: PIMAVANSERIN TARTRATE
     Indication: Hallucination
  3. NUPLAZID [Suspect]
     Active Substance: PIMAVANSERIN TARTRATE
     Indication: Delusion
  4. SINEMET [Concomitant]
     Active Substance: CARBIDOPA\LEVODOPA
     Dosage: 25-250 MILLIGRAM, TAKE ONE AND ONE HALF TABLETS BY MOUTH AT 8.30 AM AND ONE AND ONE HALF TABLET AT 1
     Dates: start: 20221017
  5. COREG [Concomitant]
     Active Substance: CARVEDILOL
     Dosage: 6.25 MILLIGRAM, TAKE 1 TABLET BY MOUTH TWICE DAILY
  6. PLAVIX [Concomitant]
     Active Substance: CLOPIDOGREL BISULFATE
     Dosage: 75 MILLIGRAM, QD
     Route: 048
  7. ZETIA [Concomitant]
     Active Substance: EZETIMIBE
     Dosage: 10 MILLIGRAM
     Route: 048
  8. LISINOPRIL [Concomitant]
     Active Substance: LISINOPRIL
     Dosage: 40 MILLIGRAM, QD
     Route: 048
  9. TYLENOL [Concomitant]
     Active Substance: ACETAMINOPHEN
     Indication: Pain
     Dosage: 325 MG EVERY 6 HOURS
     Route: 048
  10. ACCUNEB [Concomitant]
     Active Substance: ALBUTEROL SULFATE
     Indication: Cough
     Dosage: 2.5 MG/3 ML (0.083%), INHALE 3 ML VIA NEBULIZER EVERY 6 HOURS
  11. ACCUNEB [Concomitant]
     Active Substance: ALBUTEROL SULFATE
     Indication: Secretion discharge
  12. SEA OMEGA [Concomitant]
     Dosage: 1000 MILLIGRAM, QD
     Route: 048
  13. SINEMET CR [Concomitant]
     Active Substance: CARBIDOPA\LEVODOPA
     Dosage: 50-200MG PER TABLET,1 TABLET NIGHTLY
     Route: 048
  14. NIZORAL [Concomitant]
     Active Substance: KETOCONAZOLE
     Dosage: APPLY TOPICALLY 2TIMES A DAY

REACTIONS (4)
  - Dysstasia [Recovered/Resolved]
  - Confusional state [Recovered/Resolved]
  - Hallucination [Recovered/Resolved]
  - Gait disturbance [Recovered/Resolved]

NARRATIVE: CASE EVENT DATE: 20230202
